FAERS Safety Report 14849550 (Version 2)
Quarter: 2018Q2

REPORT INFORMATION
  Report Type: Spontaneous
  Country: PR (occurrence: PR)
  Receive Date: 20180504
  Receipt Date: 20180530
  Transmission Date: 20180711
  Serious: Yes (Other)
  Sender: FDA-Public Use
  Company Number: PHHY2018PR071896

PATIENT
  Age: 17 Year
  Sex: Female

DRUGS (6)
  1. MYCOPHENOLATE MOFETIL. [Suspect]
     Active Substance: MYCOPHENOLATE MOFETIL
     Indication: OCULAR PEMPHIGOID
     Dosage: UNK
     Route: 065
  2. CICLOSPORIN [Suspect]
     Active Substance: CYCLOSPORINE
     Indication: CORNEAL DEFECT
     Dosage: UNK
     Route: 065
  3. AMOXICILLIN. [Concomitant]
     Active Substance: AMOXICILLIN
     Indication: PRODUCT USED FOR UNKNOWN INDICATION
     Dosage: UNK
     Route: 065
  4. CICLOSPORIN [Suspect]
     Active Substance: CYCLOSPORINE
     Indication: SYMBLEPHARON
  5. PREDNISONE. [Suspect]
     Active Substance: PREDNISONE
     Indication: SYMBLEPHARON
  6. PREDNISONE. [Suspect]
     Active Substance: PREDNISONE
     Indication: CORNEAL DEFECT
     Dosage: UNK
     Route: 065

REACTIONS (7)
  - Visual impairment [Unknown]
  - Disease progression [Unknown]
  - Blindness transient [Unknown]
  - Ocular pemphigoid [Unknown]
  - Symblepharon [Unknown]
  - Corneal defect [Unknown]
  - Product use in unapproved indication [Unknown]
